FAERS Safety Report 25538605 (Version 1)
Quarter: 2025Q3

REPORT INFORMATION
  Report Type: Spontaneous
  Country: US (occurrence: US)
  Receive Date: 20250710
  Receipt Date: 20250710
  Transmission Date: 20251021
  Serious: Yes (Hospitalization, Other)
  Sender: SHILPA MEDICARE
  Company Number: US-KOANAAP-SML-US-2025-00317

PATIENT
  Age: 70 Year
  Sex: Female

DRUGS (2)
  1. PEMETREXED [Suspect]
     Active Substance: PEMETREXED
     Indication: Sweat gland tumour
  2. CARBOPLATIN [Suspect]
     Active Substance: CARBOPLATIN
     Indication: Sweat gland tumour
     Dosage: CARBOPLATIN AUC 6

REACTIONS (2)
  - Drug ineffective [Unknown]
  - Disease progression [Unknown]
